FAERS Safety Report 10607914 (Version 1)
Quarter: 2014Q4

REPORT INFORMATION
  Report Type: Spontaneous
  Country: US (occurrence: US)
  Receive Date: 20141125
  Receipt Date: 20141125
  Transmission Date: 20150529
  Serious: No
  Sender: FDA-Public Use
  Company Number: US-BRISTOL-MYERS SQUIBB COMPANY-21403852

PATIENT
  Age: 67 Year
  Sex: Female
  Weight: 121.54 kg

DRUGS (13)
  1. GLIMEPIRIDE. [Concomitant]
     Active Substance: GLIMEPIRIDE
  2. METHENAMINE [Concomitant]
     Active Substance: METHENAMINE
  3. PREVACID [Concomitant]
     Active Substance: LANSOPRAZOLE
  4. MONOBASIC SODIUM PHOSPHATE [Concomitant]
  5. CELEXA [Concomitant]
     Active Substance: CITALOPRAM HYDROBROMIDE
  6. CLARITIN [Concomitant]
     Active Substance: LORATADINE
     Indication: HYPERSENSITIVITY
  7. METHYLENE BLUE. [Concomitant]
     Active Substance: METHYLENE BLUE
  8. FARXIGA [Suspect]
     Active Substance: DAPAGLIFLOZIN PROPANEDIOL
     Indication: TYPE 2 DIABETES MELLITUS
     Dosage: TABLET?INTERR AROUNG 04AUG14.?RESTARTED
     Dates: start: 20140716
  9. HYZAAR [Concomitant]
     Active Substance: HYDROCHLOROTHIAZIDE\LOSARTAN POTASSIUM
  10. IRON [Concomitant]
     Active Substance: IRON
  11. CALCIUM [Concomitant]
     Active Substance: CALCIUM
  12. HYOSCYAMINE SULFATE. [Concomitant]
     Active Substance: HYOSCYAMINE SULFATE
  13. GABAPENTIN. [Concomitant]
     Active Substance: GABAPENTIN

REACTIONS (6)
  - Joint swelling [Recovered/Resolved]
  - Dysphagia [Unknown]
  - Pollakiuria [Unknown]
  - Dry mouth [Unknown]
  - Fungal infection [Not Recovered/Not Resolved]
  - Energy increased [Unknown]

NARRATIVE: CASE EVENT DATE: 2014
